FAERS Safety Report 5526296-0 (Version None)
Quarter: 2007Q4

REPORT INFORMATION
  Report Type: 
  Country: None (occurrence: None)
  Receive Date: 20071127
  Receipt Date: 20071113
  Transmission Date: 20080405
  Serious: Yes (Hospitalization)
  Sender: FDA-Public Use
  Company Number: DE-RANBAXY-2007US-11514

PATIENT

DRUGS (11)
  1. VERAPAMIL [Suspect]
     Indication: SUICIDE ATTEMPT
     Dosage: 80 MG, SINGLE
     Route: 048
     Dates: start: 20071111, end: 20071111
  2. EUNERPAN [Suspect]
     Indication: SUICIDE ATTEMPT
     Dosage: 50 MG, SINGLE
     Route: 048
     Dates: start: 20071111, end: 20071111
  3. DECORTIN 5 [Suspect]
     Indication: SUICIDE ATTEMPT
     Dosage: 5 MG, SINGLE
     Route: 048
     Dates: start: 20071111, end: 20071111
  4. KEPPRA [Suspect]
     Indication: SUICIDE ATTEMPT
     Dosage: 1000 MG, SINGLE
     Route: 048
     Dates: start: 20071111, end: 20071111
  5. L-THYROXIN 50 [Suspect]
     Indication: SUICIDE ATTEMPT
     Dosage: 50 UG, SINGLE
     Route: 048
     Dates: start: 20071111, end: 20071111
  6. LORAZEPAM [Suspect]
     Indication: SUICIDE ATTEMPT
     Dosage: 4 MG, SINGLE
     Route: 048
     Dates: start: 20071111, end: 20071111
  7. RIVOTRIL 2 TABLETTEN [Suspect]
     Indication: SUICIDE ATTEMPT
     Dosage: UNK
     Route: 048
     Dates: start: 20071111, end: 20071111
  8. SEROQUEL [Suspect]
     Indication: SUICIDE ATTEMPT
     Dosage: 400 MG, SINGLE
     Route: 048
     Dates: start: 20071111, end: 20071111
  9. SEROQUEL [Suspect]
     Dosage: 600 MG, SINGLE
     Route: 048
     Dates: start: 20071111, end: 20071111
  10. PREDNISONE TAB [Suspect]
     Indication: SUICIDE ATTEMPT
     Dosage: 5 MG, SINGLE
     Route: 048
     Dates: start: 20071111, end: 20071111
  11. CLONAZEPAM [Suspect]
     Indication: SUICIDE ATTEMPT
     Dosage: UNK
     Route: 048
     Dates: start: 20071111, end: 20071111

REACTIONS (2)
  - SOMNOLENCE [None]
  - SUICIDE ATTEMPT [None]
